FAERS Safety Report 25129614 (Version 1)
Quarter: 2025Q1

REPORT INFORMATION
  Report Type: Report from Study
  Country: US (occurrence: US)
  Receive Date: 20250327
  Receipt Date: 20250327
  Transmission Date: 20250409
  Serious: Yes (Hospitalization)
  Sender: ALEXION PHARMACEUTICALS
  Company Number: US-AstraZeneca-CH-00832820A

PATIENT
  Age: 59 Year

DRUGS (1)
  1. CAPIVASERTIB [Suspect]
     Active Substance: CAPIVASERTIB
     Indication: Breast cancer female

REACTIONS (4)
  - Hypersensitivity [Unknown]
  - Diarrhoea [Unknown]
  - Hypotension [Unknown]
  - Decreased appetite [Unknown]
